FAERS Safety Report 10557821 (Version 2)
Quarter: 2014Q4

REPORT INFORMATION
  Report Type: Spontaneous
  Country: US (occurrence: US)
  Receive Date: 20141031
  Receipt Date: 20141117
  Transmission Date: 20150529
  Serious: Yes (Hospitalization, Other)
  Sender: FDA-Public Use
  Company Number: US-009507513-1410USA015464

PATIENT
  Age: 89 Year
  Sex: Female
  Weight: 68.27 kg

DRUGS (1)
  1. INVANZ [Suspect]
     Active Substance: ERTAPENEM SODIUM
     Indication: CHOLECYSTITIS
     Dosage: 1 G, QD
     Route: 042

REACTIONS (2)
  - Seizure [Recovered/Resolved]
  - Blood creatinine abnormal [Unknown]
